FAERS Safety Report 4700127-0 (Version None)
Quarter: 2005Q2

REPORT INFORMATION
  Report Type: 
  Country: None (occurrence: None)
  Receive Date: 20050627
  Receipt Date: 20050613
  Transmission Date: 20051028
  Serious: Yes (Other)
  Sender: FDA-Public Use
  Company Number: NO-KINGPHARMUSA00001-K200500817

PATIENT
  Age: 80 Year
  Sex: Female

DRUGS (14)
  1. LEVOXYL [Suspect]
     Indication: THYROID CANCER METASTATIC
     Dosage: 125 MCG, QD
  2. LEVOXYL [Suspect]
     Dosage: 200 MCG, QD
     Dates: end: 20040301
  3. LEVOXYL [Suspect]
     Dosage: 125 MCG, QD
     Dates: start: 20040301
  4. CIPROFLOXACIN [Suspect]
     Indication: OSTEOMYELITIS
     Dosage: 750 MG, BID
     Route: 048
     Dates: start: 20031229, end: 20040301
  5. DICLOXACILLIN [Concomitant]
     Indication: OSTEOMYELITIS
     Route: 042
     Dates: start: 20031229
  6. HEPARIN [Concomitant]
     Route: 058
     Dates: start: 20031229
  7. CALCITRIOL [Concomitant]
  8. PROPRANOLOL [Concomitant]
  9. RANITIDINE [Concomitant]
  10. FUROSEMIDE [Concomitant]
  11. METHENAMINE HIPPURATE [Concomitant]
  12. PARACETAMOL [Concomitant]
  13. MORPHINE [Concomitant]
  14. ONDANSETRON [Concomitant]

REACTIONS (6)
  - BLOOD THYROID STIMULATING HORMONE INCREASED [None]
  - DRUG INTERACTION [None]
  - FATIGUE [None]
  - HYPOTHYROIDISM [None]
  - THYROXINE FREE DECREASED [None]
  - TRI-IODOTHYRONINE DECREASED [None]
